FAERS Safety Report 20348604 (Version 1)
Quarter: 2022Q1

REPORT INFORMATION
  Report Type: Spontaneous
  Country: US (occurrence: US)
  Receive Date: 20220119
  Receipt Date: 20220119
  Transmission Date: 20220423
  Serious: No
  Sender: FDA-Public Use
  Company Number: US-EPICPHARMA-US-2022EPCSPO00031

PATIENT
  Age: 74 Year
  Sex: Female

DRUGS (3)
  1. FUROSEMIDE [Suspect]
     Active Substance: FUROSEMIDE
     Indication: Polyuria
     Route: 048
  2. METOLAZONE [Suspect]
     Active Substance: METOLAZONE
     Indication: Polyuria
     Route: 065
  3. ENTRESTO [Suspect]
     Active Substance: SACUBITRIL\VALSARTAN
     Indication: Cardiac failure
     Route: 048
     Dates: start: 20210305

REACTIONS (2)
  - Weight fluctuation [Recovered/Resolved]
  - Fluid imbalance [Recovered/Resolved]
